FAERS Safety Report 19088196 (Version 1)
Quarter: 2021Q2

REPORT INFORMATION
  Report Type: Spontaneous
  Country: US (occurrence: US)
  Receive Date: 20210402
  Receipt Date: 20210402
  Transmission Date: 20210717
  Serious: Yes (Other)
  Sender: FDA-Public Use
  Company Number: US-ALLERGAN-2106023US

PATIENT
  Sex: Female

DRUGS (4)
  1. DALVANCE [Suspect]
     Active Substance: DALBAVANCIN
     Indication: DECUBITUS ULCER
  2. DALVANCE [Suspect]
     Active Substance: DALBAVANCIN
     Indication: OSTEOMYELITIS
     Dosage: 1500 MG, SINGLE
     Route: 042
     Dates: start: 20210204, end: 20210204
  3. DALVANCE [Suspect]
     Active Substance: DALBAVANCIN
     Indication: CELLULITIS
     Dosage: 1500 MG, SINGLE
     Route: 042
     Dates: start: 20210128, end: 20210128
  4. LEVAQUIN [Suspect]
     Active Substance: LEVOFLOXACIN
     Indication: PRODUCT USED FOR UNKNOWN INDICATION
     Dosage: UNK, HIGH DOSE
     Route: 048

REACTIONS (6)
  - Abdominal discomfort [Unknown]
  - Myalgia [Unknown]
  - Hypersensitivity [Recovered/Resolved]
  - Off label use [Unknown]
  - Decreased appetite [Unknown]
  - Haemorrhage [Recovered/Resolved]

NARRATIVE: CASE EVENT DATE: 20210128
